FAERS Safety Report 20880238 (Version 2)
Quarter: 2022Q2

REPORT INFORMATION
  Report Type: Spontaneous
  Country: AU (occurrence: AU)
  Receive Date: 20220526
  Receipt Date: 20220608
  Transmission Date: 20220720
  Serious: Yes (Other)
  Sender: FDA-Public Use
  Company Number: AU-TEVA-2022-AU-2039310

PATIENT
  Age: 21 Year
  Sex: Female

DRUGS (12)
  1. OCTREOTIDE [Suspect]
     Active Substance: OCTREOTIDE
     Indication: Gastric mucosal hypertrophy
     Dosage: THE PATIENT RECEIVED FOUR MONTH TREATMENT WITH MONTHLY 20MG INTRAMUSCULAR INJECTION OF OCTREOTIDE
     Route: 030
  2. AZATHIOPRINE [Suspect]
     Active Substance: AZATHIOPRINE
     Indication: Colitis ulcerative
     Route: 065
  3. CETUXIMAB [Suspect]
     Active Substance: CETUXIMAB
     Indication: Gastric mucosal hypertrophy
     Dosage: THE PATIENT RECEIVED IV CETUXIMAB(750MG LOADING DOSE FOLLOWED BY 500MG WEEKLY)
     Route: 042
  4. CETUXIMAB [Suspect]
     Active Substance: CETUXIMAB
     Dosage: THE PATIENT RECEIVED IV CETUXIMAB(750MG LOADING DOSE FOLLOWED BY 500MG WEEKLY)
     Route: 042
  5. VEDOLIZUMAB [Suspect]
     Active Substance: VEDOLIZUMAB
     Indication: Colitis ulcerative
     Dosage: THE PATIENT RECEIVED VEDOLIZUMAB FOUR WEEKLY AND SUBSEQUENTLY DOSE ESCALATED
     Route: 065
  6. INFLIXIMAB [Suspect]
     Active Substance: INFLIXIMAB
     Indication: Colitis ulcerative
     Dosage: BY USING THERAPEUTIC DRUG MONITORING INFLIXIMAB INFUSION DOSING WAS OPTIMIZED (AIMING FOR WEEK 6 ...
     Route: 065
  7. INFLIXIMAB [Suspect]
     Active Substance: INFLIXIMAB
     Dosage: INFLIXIMAB LEVELS WERE DIFFICULT TO MAINTAIN AT 10MG/L INSPITE OF AGGRESSIVE INFLIXIMAB INFUSIONS...
     Route: 065
  8. INFLIXIMAB [Suspect]
     Active Substance: INFLIXIMAB
     Dosage: SERUM INFLIXIMAB LEVELS STABILISED AT 10MG/L ON FOUR WEEKLY (10MG/KG) INFUSIONS.
     Route: 065
  9. METHOTREXATE [Suspect]
     Active Substance: METHOTREXATE
     Indication: Colitis ulcerative
     Route: 058
  10. VITAMIN D [Suspect]
     Active Substance: VITAMIN D NOS
     Indication: Vitamin D deficiency
     Route: 065
  11. MESALAMINE [Concomitant]
     Active Substance: MESALAMINE
     Indication: Colitis ulcerative
     Dosage: THE PATIENT RECEIVED ORAL MESALAZINE GRANULES
     Route: 048
  12. TOFACITINIB [Concomitant]
     Active Substance: TOFACITINIB
     Indication: Colitis ulcerative
     Dosage: 20 MILLIGRAM DAILY;
     Route: 065

REACTIONS (4)
  - Myalgia [Recovered/Resolved]
  - Chills [Recovered/Resolved]
  - Dermatitis acneiform [Recovered/Resolved]
  - Drug ineffective [Unknown]
